FAERS Safety Report 10068428 (Version 2)
Quarter: 2014Q2

REPORT INFORMATION
  Report Type: Spontaneous
  Country: US (occurrence: US)
  Receive Date: 20140409
  Receipt Date: 20140509
  Transmission Date: 20141212
  Serious: No
  Sender: FDA-Public Use
  Company Number: US-009507513-1404USA000530

PATIENT
  Age: 50 Year
  Sex: Female
  Weight: 62.13 kg

DRUGS (7)
  1. OXYTROL FOR WOMEN [Suspect]
     Indication: CYSTITIS INTERSTITIAL
     Dosage: 1 DF, QW
     Route: 062
     Dates: start: 201308, end: 201310
  2. OXYTROL FOR WOMEN [Suspect]
     Dosage: 1 DF, QW
     Route: 062
     Dates: start: 201402, end: 201403
  3. LIALDA [Concomitant]
     Indication: COLITIS ULCERATIVE
     Dosage: UNK, UNKNOWN
  4. BUTRANS [Concomitant]
     Indication: FIBROMYALGIA
     Dosage: UNK, UNKNOWN
  5. DANAZOL [Concomitant]
     Indication: BREAST PAIN
     Dosage: UNK, UNKNOWN
  6. DIVIGEL [Concomitant]
     Indication: OESTROGEN THERAPY
     Dosage: UNK, UNKNOWN
  7. DIVIGEL [Concomitant]
     Indication: MENOPAUSE

REACTIONS (2)
  - Headache [Recovered/Resolved]
  - Incorrect drug administration duration [Unknown]
